FAERS Safety Report 6904678-X (Version None)
Quarter: 2010Q3

REPORT INFORMATION
  Report Type: 
  Country: None (occurrence: None)
  Receive Date: 20100804
  Receipt Date: 20090702
  Transmission Date: 20110219
  Serious: Yes (Other)
  Sender: FDA-Public Use
  Company Number: US-PFIZER INC-2009236984

PATIENT
  Sex: Female
  Weight: 70.748 kg

DRUGS (2)
  1. LYRICA [Suspect]
     Indication: FIBROMYALGIA
     Route: 048
     Dates: start: 20081001, end: 20090703
  2. PARACETAMOL [Concomitant]

REACTIONS (3)
  - DEPRESSION [None]
  - MANIA [None]
  - SUICIDAL IDEATION [None]
